FAERS Safety Report 24976962 (Version 1)
Quarter: 2025Q1

REPORT INFORMATION
  Report Type: Spontaneous
  Country: IT (occurrence: IT)
  Receive Date: 20250217
  Receipt Date: 20250217
  Transmission Date: 20250408
  Serious: Yes (Hospitalization, Other)
  Sender: COSETTE PHARMACEUTICALS INC
  Company Number: IT-COSETTE-CP2025IT000139

PATIENT
  Age: 39 Year
  Sex: Female

DRUGS (10)
  1. INDOMETHACIN [Suspect]
     Active Substance: INDOMETHACIN
     Indication: Chronic paroxysmal hemicrania
     Route: 065
  2. INDOMETHACIN [Suspect]
     Active Substance: INDOMETHACIN
     Indication: Migraine
     Route: 065
  3. GALCANEZUMAB [Concomitant]
     Active Substance: GALCANEZUMAB
     Indication: Migraine
     Route: 058
  4. GALCANEZUMAB [Concomitant]
     Active Substance: GALCANEZUMAB
     Route: 058
  5. PROPRANOLOL [Concomitant]
     Active Substance: PROPRANOLOL HYDROCHLORIDE
     Indication: Migraine prophylaxis
     Route: 065
  6. AMITRIPTYLINE [Concomitant]
     Active Substance: AMITRIPTYLINE
     Indication: Migraine prophylaxis
     Route: 065
  7. TOPIRAMATE [Concomitant]
     Active Substance: TOPIRAMATE
     Indication: Migraine prophylaxis
     Route: 065
  8. PREDNISONE [Concomitant]
     Active Substance: PREDNISONE
     Indication: Product used for unknown indication
     Route: 065
  9. METRONIDAZOLE [Concomitant]
     Active Substance: METRONIDAZOLE
     Indication: Product used for unknown indication
     Route: 065
  10. BOTULINUM TOXIN TYPE A [Concomitant]
     Active Substance: BOTULINUM TOXIN TYPE A
     Indication: Migraine
     Route: 065

REACTIONS (3)
  - Intestinal diaphragm disease [Unknown]
  - Intentional product misuse [Unknown]
  - Product use in unapproved indication [Unknown]
